FAERS Safety Report 10249238 (Version 1)
Quarter: 2014Q2

REPORT INFORMATION
  Report Type: Spontaneous
  Country: US (occurrence: None)
  Receive Date: 20140618
  Receipt Date: 20140618
  Transmission Date: 20141212
  Serious: Yes (Hospitalization)
  Sender: FDA-Public Use
  Company Number: 2387802

PATIENT
  Age: 21 Year
  Sex: Male

DRUGS (3)
  1. PROPOFOL [Suspect]
     Indication: PRODUCT USED FOR UNKNOWN INDICATION
     Route: 041
  2. METHYLENEDIOXYMETHAMPHETAMINE [Suspect]
     Route: 048
  3. N-ACETYLCYSTEINE [Concomitant]

REACTIONS (7)
  - Muscle rigidity [None]
  - Hyperhidrosis [None]
  - Rhabdomyolysis [None]
  - Acute hepatic failure [None]
  - Encephalopathy [None]
  - Cerebral haemorrhage [None]
  - Renal failure [None]
